FAERS Safety Report 5762793-0 (Version None)
Quarter: 2008Q2

REPORT INFORMATION
  Report Type: 
  Country: None (occurrence: None)
  Receive Date: 20080528
  Receipt Date: 20080131
  Transmission Date: 20081010
  Serious: Yes (Hospitalization)
  Sender: FDA-Public Use
  Company Number: PHEH2008US01469

PATIENT

DRUGS (1)
  1. TASIGNA [Suspect]

REACTIONS (3)
  - DYSPNOEA [None]
  - EFFUSION [None]
  - PYREXIA [None]
